FAERS Safety Report 14097481 (Version 2)
Quarter: 2017Q4

REPORT INFORMATION
  Report Type: Spontaneous
  Country: ES (occurrence: ES)
  Receive Date: 20171017
  Receipt Date: 20171123
  Transmission Date: 20180321
  Serious: Yes (Hospitalization, Disabling, Other)
  Sender: FDA-Public Use
  Company Number: ES-VISTAPHARM, INC.-VER201710-000875

PATIENT
  Age: 52 Year
  Sex: Male
  Weight: 108 kg

DRUGS (14)
  1. MORPHINE [Suspect]
     Active Substance: MORPHINE
     Route: 048
  2. ZOLPIDEM [Concomitant]
     Active Substance: ZOLPIDEM\ZOLPIDEM TARTRATE
     Route: 048
  3. MORPHINE [Suspect]
     Active Substance: MORPHINE
     Route: 048
  4. INSULIN LISPRO PROTAMINE/INSULIN LISPRO [Concomitant]
     Dosage: 15 UNITS IN THE MORNING, 17 UNITS AT LUNCH, AND 5 UNITS IN THE EVENING
     Route: 058
  5. TELMISARTAN. [Concomitant]
     Active Substance: TELMISARTAN
     Route: 048
  6. MORPHINE [Suspect]
     Active Substance: MORPHINE
     Indication: PAIN IN EXTREMITY
     Route: 048
  7. IBUPROFEN. [Concomitant]
     Active Substance: IBUPROFEN
     Indication: PAIN IN EXTREMITY
     Dosage: 600 MG IN THE MOMING, AT LUNCH, AND IN THE EVENING
     Route: 048
  8. BEMIPARIN [Concomitant]
     Route: 058
  9. LACTULOSE. [Concomitant]
     Active Substance: LACTULOSE
     Indication: CONSTIPATION
     Route: 048
  10. LOSARTAN. [Concomitant]
     Active Substance: LOSARTAN
     Route: 048
  11. ACETAMINOPHEN. [Concomitant]
     Active Substance: ACETAMINOPHEN
     Route: 048
  12. MORPHINE [Suspect]
     Active Substance: MORPHINE
     Route: 048
  13. ESCITALOPRAM [Concomitant]
     Active Substance: ESCITALOPRAM OXALATE
     Route: 048
  14. PREGABALIN. [Concomitant]
     Active Substance: PREGABALIN
     Indication: PAIN MANAGEMENT
     Route: 048

REACTIONS (4)
  - Deafness bilateral [Not Recovered/Not Resolved]
  - Pyrexia [Unknown]
  - Tinnitus [Recovering/Resolving]
  - Urinary tract infection [Unknown]
